FAERS Safety Report 7471372-9 (Version None)
Quarter: 2011Q2

REPORT INFORMATION
  Report Type: 
  Country: None (occurrence: None)
  Receive Date: 20110510
  Receipt Date: 20110428
  Transmission Date: 20111010
  Serious: Yes (Other)
  Sender: FDA-Public Use
  Company Number: PL-GENENTECH-318059

PATIENT
  Sex: Female
  Weight: 54 kg

DRUGS (6)
  1. METHOTREXATE [Concomitant]
     Indication: RHEUMATOID ARTHRITIS
     Dosage: 20 MG, 1/WEEK
     Dates: start: 20020101
  2. CALCIUM CARBONATE [Concomitant]
     Indication: PRODUCT USED FOR UNKNOWN INDICATION
     Dosage: 1250 MG, QAM
     Dates: start: 20020101
  3. RITUXAN [Suspect]
     Indication: RHEUMATOID ARTHRITIS
     Dosage: 1000 MG, Q6M
     Route: 042
     Dates: start: 20091103, end: 20110214
  4. PREDNISONE [Concomitant]
     Indication: RHEUMATOID ARTHRITIS
     Dosage: 5 MG, QAM
     Dates: start: 20020101
  5. BIOXETIN [Concomitant]
     Indication: ANXIETY DISORDER
     Dosage: 1 DF, QAM
     Dates: start: 20040101
  6. AFOBAM [Concomitant]
     Indication: ANXIETY DISORDER
     Dosage: 1 DF, UNK
     Dates: start: 20040101

REACTIONS (1)
  - INTERSTITIAL LUNG DISEASE [None]
